FAERS Safety Report 6290374-1 (Version None)
Quarter: 2009Q3

REPORT INFORMATION
  Report Type: 
  Country: None (occurrence: None)
  Receive Date: 20090730
  Receipt Date: 20090317
  Transmission Date: 20100115
  Serious: No
  Sender: FDA-Public Use
  Company Number: US-BRISTOL-MYERS SQUIBB COMPANY-14546907

PATIENT
  Age: 66 Year
  Sex: Female
  Weight: 86 kg

DRUGS (3)
  1. WARFARIN SODIUM [Suspect]
  2. PLAVIX [Suspect]
  3. ASPIRIN [Concomitant]
     Dosage: 325 MG QD FROM JAN2009
     Dates: start: 20010101

REACTIONS (1)
  - RASH [None]
